FAERS Safety Report 6862324-8 (Version None)
Quarter: 2010Q3

REPORT INFORMATION
  Report Type: 
  Country: None (occurrence: None)
  Receive Date: 20100721
  Receipt Date: 20100708
  Transmission Date: 20110219
  Serious: Yes (Hospitalization, Other)
  Sender: FDA-Public Use
  Company Number: PHHY2010GR44964

PATIENT
  Age: 64 Year
  Sex: Male

DRUGS (8)
  1. RASILEZ HCT [Suspect]
     Indication: HYPERTENSION
     Dosage: 300/25 MG
     Dates: start: 20100301, end: 20100601
  2. NORVASC [Concomitant]
  3. CARVEDIL [Concomitant]
  4. LASIX [Concomitant]
  5. SALOSPIR [Concomitant]
  6. RESOFERON [Concomitant]
  7. CONTROLOC [Concomitant]
  8. ARANESP [Concomitant]

REACTIONS (3)
  - DERMATITIS EXFOLIATIVE [None]
  - RASH GENERALISED [None]
  - SKIN OEDEMA [None]
